FAERS Safety Report 9164885 (Version 1)
Quarter: 2013Q1

REPORT INFORMATION
  Report Type: Other
  Country: US (occurrence: US)
  Receive Date: 20130315
  Receipt Date: 20130315
  Transmission Date: 20140127
  Serious: Yes (Other)
  Sender: FDA-Public Use
  Company Number: US-PURDUE-GBR-2013-0013357

PATIENT
  Age: 85 Year
  Sex: Female

DRUGS (1)
  1. MORPHINE SULFATE [Suspect]
     Indication: PAIN
     Dosage: 2.5 MG, Q4H
     Route: 060

REACTIONS (1)
  - Angioedema [Recovered/Resolved]
